FAERS Safety Report 14616699 (Version 3)
Quarter: 2018Q2

REPORT INFORMATION
  Report Type: Spontaneous
  Country: JP (occurrence: JP)
  Receive Date: 20180309
  Receipt Date: 20180502
  Transmission Date: 20180711
  Serious: Yes (Hospitalization)
  Sender: FDA-Public Use
  Company Number: JP-ROCHE-2080740

PATIENT
  Age: 38 Year
  Sex: Female
  Weight: 71 kg

DRUGS (6)
  1. ALECENSA [Suspect]
     Active Substance: ALECTINIB HYDROCHLORIDE
     Indication: LUNG ADENOCARCINOMA
     Route: 048
     Dates: start: 20180129
  2. NAIXAN [Concomitant]
     Active Substance: NAPROXEN SODIUM
     Dosage: DOSAGE IS UNCERTAIN.
     Route: 048
     Dates: start: 201712
  3. MOHRUS TAPE L [Concomitant]
     Active Substance: KETOPROFEN
     Dosage: DOSAGE IS UNCERTAIN.
     Route: 061
     Dates: start: 201712
  4. FAMOTIDINE. [Concomitant]
     Active Substance: FAMOTIDINE
     Dosage: DOSAGE IS UNCERTAIN.
     Route: 048
     Dates: start: 201712
  5. OXINORM POWDER [Concomitant]
     Dosage: DOSAGE IS UNCERTAIN.
     Route: 048
     Dates: start: 20180123
  6. CALONAL [Concomitant]
     Active Substance: ACETAMINOPHEN
     Dosage: DOSAGE IS UNCERTAIN.
     Route: 048
     Dates: start: 201712

REACTIONS (2)
  - Lip swelling [Unknown]
  - Toxic skin eruption [Recovering/Resolving]

NARRATIVE: CASE EVENT DATE: 20180206
